FAERS Safety Report 12553749 (Version 2)
Quarter: 2017Q1

REPORT INFORMATION
  Report Type: Spontaneous
  Country: US (occurrence: US)
  Receive Date: 20160713
  Receipt Date: 20170113
  Transmission Date: 20170428
  Serious: Yes (Other)
  Sender: FDA-Public Use
  Company Number: US-NOVOPROD-497693

PATIENT
  Age: 46 Year
  Sex: Male
  Weight: 112.93 kg

DRUGS (3)
  1. PHENTERMINE. [Concomitant]
     Active Substance: PHENTERMINE
     Indication: PRODUCT USED FOR UNKNOWN INDICATION
     Dosage: 37.5 MG, QD
     Dates: start: 20160225, end: 20160630
  2. SAXENDA [Suspect]
     Active Substance: LIRAGLUTIDE
     Indication: OBESITY
     Dosage: 3 MG, QD
     Route: 058
     Dates: start: 201603, end: 20160330
  3. SAXENDA [Suspect]
     Active Substance: LIRAGLUTIDE
     Indication: OVERWEIGHT
     Dosage: UNKNOWN
     Route: 058
     Dates: start: 20160225, end: 201603

REACTIONS (1)
  - Pancreatitis [Recovered/Resolved]

NARRATIVE: CASE EVENT DATE: 201603
